FAERS Safety Report 4285735-6 (Version None)
Quarter: 2004Q1

REPORT INFORMATION
  Report Type: 
  Country: None (occurrence: None)
  Receive Date: 20040205
  Receipt Date: 20040107
  Transmission Date: 20041129
  Serious: Yes (Other)
  Sender: FDA-Public Use
  Company Number: US-BRISTOL-MYERS SQUIBB COMPANY-12472072

PATIENT
  Age: 69 Year
  Sex: Female
  Weight: 73 kg

DRUGS (14)
  1. ABATACEPT [Suspect]
     Indication: RHEUMATOID ARTHRITIS
     Route: 042
     Dates: start: 20020528, end: 20031117
  2. METHOTREXATE [Suspect]
     Dates: start: 19930101
  3. IRON [Concomitant]
     Dates: start: 20030723
  4. FOLIC ACID [Concomitant]
     Dates: start: 20030723
  5. COUMADIN [Concomitant]
     Dates: start: 20030910
  6. NEXIUM [Concomitant]
     Dates: start: 20030723
  7. PERCOCET [Concomitant]
     Dates: start: 20030723
  8. LASIX [Concomitant]
  9. AMARYL [Concomitant]
     Dates: start: 20030723
  10. DIGITEK [Concomitant]
     Dates: start: 20030723
  11. VASOTEC [Concomitant]
     Dates: start: 20030723
  12. ALDACTONE [Concomitant]
     Dates: start: 20031014
  13. COREG [Concomitant]
  14. CARDIZEM CD [Concomitant]

REACTIONS (3)
  - ASCITES [None]
  - METASTASES TO PERITONEUM [None]
  - OVARIAN CANCER [None]
